FAERS Safety Report 14078278 (Version 2)
Quarter: 2017Q4

REPORT INFORMATION
  Report Type: Spontaneous
  Country: US (occurrence: US)
  Receive Date: 20171012
  Receipt Date: 20171018
  Transmission Date: 20180321
  Serious: No
  Sender: FDA-Public Use
  Company Number: US-PFIZER INC-2017440716

PATIENT
  Age: 11 Year
  Sex: Female
  Weight: 31 kg

DRUGS (1)
  1. GENOTROPIN [Suspect]
     Active Substance: SOMATROPIN
     Indication: GROWTH HORMONE DEFICIENCY
     Dosage: 1.4 MG, DAILY, 6X/WEEK
     Route: 058
     Dates: start: 201706

REACTIONS (4)
  - Arthralgia [Unknown]
  - Visual impairment [Unknown]
  - Drug dose omission [Unknown]
  - Headache [Not Recovered/Not Resolved]
